FAERS Safety Report 9389057 (Version 1)
Quarter: 2013Q3

REPORT INFORMATION
  Report Type: Report from Study
  Country: JP (occurrence: JP)
  Receive Date: 20130708
  Receipt Date: 20130708
  Transmission Date: 20140515
  Serious: Yes (Death, Life-Threatening, Other)
  Sender: FDA-Public Use
  Company Number: JP-009507513-1307JPN003224

PATIENT
  Age: 27 Year
  Sex: Female
  Weight: 47 kg

DRUGS (13)
  1. TEMOZOLOMIDE [Suspect]
     Indication: GLIOBLASTOMA MULTIFORME
     Dosage: 75 DF, QD
     Route: 041
     Dates: start: 20101225, end: 20110103
  2. TEMODAL [Suspect]
     Indication: GLIOBLASTOMA MULTIFORME
     Dosage: 75 DF, QD
     Route: 048
     Dates: start: 20110104, end: 20110215
  3. TEMODAL [Suspect]
     Dosage: 150 DF, QD
     Route: 048
     Dates: start: 20110326, end: 20110330
  4. BAKTAR [Concomitant]
     Indication: ANTIFUNGAL PROPHYLAXIS
     Dosage: UNK
     Route: 048
     Dates: start: 20101228, end: 20110415
  5. RINDERON (BETAMETHASONE SODIUM PHOSPHATE) [Concomitant]
     Indication: PROPHYLAXIS
     Dosage: UNK
     Route: 048
     Dates: start: 20101231, end: 20110415
  6. FAMOTIDINE [Concomitant]
     Indication: PROPHYLAXIS
     Dosage: UNK
     Route: 048
     Dates: start: 20101231, end: 20110415
  7. MAGMITT [Concomitant]
     Indication: PROPHYLAXIS
     Dosage: UNK
     Route: 048
     Dates: start: 20110115, end: 20110415
  8. BESACOLIN [Concomitant]
     Indication: PROPHYLAXIS
     Dosage: UNK
     Route: 048
     Dates: start: 20110224, end: 20110415
  9. LACTEC [Concomitant]
     Dosage: UNK
     Route: 041
     Dates: start: 20110415, end: 20110418
  10. SOLDEM 3A [Concomitant]
     Dosage: UNK
     Route: 041
     Dates: start: 20110415, end: 20110418
  11. ZANTAC [Concomitant]
     Indication: PROPHYLAXIS
     Dosage: UNK
     Route: 041
     Dates: start: 20110415, end: 20110418
  12. BFLUID [Concomitant]
     Dosage: UNK
     Route: 041
     Dates: start: 20110415, end: 20110418
  13. HORIZON [Concomitant]
     Indication: CONVULSION
     Dosage: UNK
     Route: 042
     Dates: start: 20110416, end: 20110416

REACTIONS (3)
  - Brain stem haemorrhage [Fatal]
  - Convulsion [Recovered/Resolved]
  - Disease progression [Fatal]
